FAERS Safety Report 5928614-8 (Version None)
Quarter: 2008Q3

REPORT INFORMATION
  Report Type: 
  Country: None (occurrence: None)
  Receive Date: 20080923
  Receipt Date: 20080213
  Transmission Date: 20090109
  Serious: Yes (Other)
  Sender: FDA-Public Use
  Company Number: WAES 0802USA03159

PATIENT
  Age: 58 Year
  Sex: Female
  Weight: 68.9467 kg

DRUGS (5)
  1. VYTORIN [Suspect]
     Indication: BLOOD CHOLESTEROL INCREASED
     Dosage: 10-20 MG/DAILY/PO
     Route: 048
     Dates: start: 20070621, end: 20070801
  2. AMBIEN [Concomitant]
  3. FOSAMAX [Concomitant]
  4. SINGULAIR [Concomitant]
  5. SYNTHROID [Concomitant]

REACTIONS (2)
  - RASH PAPULAR [None]
  - RASH PRURITIC [None]
